FAERS Safety Report 8382799-5 (Version None)
Quarter: 2012Q2

REPORT INFORMATION
  Report Type: 
  Country: None (occurrence: None)
  Receive Date: 20120524
  Receipt Date: 20120516
  Transmission Date: 20120825
  Serious: Yes (Other)
  Sender: FDA-Public Use
  Company Number: FR-JNJFOC-20120515821

PATIENT
  Sex: Male

DRUGS (4)
  1. CETIRIZINE HCL AND PSEUDOEPHEDRINE HCL [Suspect]
     Indication: RHINITIS ALLERGIC
     Route: 048
     Dates: start: 20120207
  2. ALPRAZOLAM [Suspect]
     Indication: ANXIETY
     Route: 048
     Dates: start: 20111101
  3. CETIRIZINE HCL AND PSEUDOEPHEDRINE HCL [Suspect]
     Route: 048
  4. ESCITALOPRAM [Suspect]
     Indication: ANXIETY
     Route: 048
     Dates: start: 20120201

REACTIONS (1)
  - AMNESIA [None]
